FAERS Safety Report 9478730 (Version 2)
Quarter: 2013Q3

REPORT INFORMATION
  Report Type: Not Available
  Country: US (occurrence: US)
  Receive Date: 20130827
  Receipt Date: 20130827
  Transmission Date: 20140515
  Serious: No
  Sender: FDA-Public Use
  Company Number: US-AMARIN PHARMA, INC.-2013AMR000014

PATIENT
  Sex: Male
  Weight: 88.98 kg

DRUGS (16)
  1. VASCEPA [Suspect]
     Indication: BLOOD TRIGLYCERIDES INCREASED
     Dates: start: 20130316, end: 20130409
  2. VASCEPA [Suspect]
     Route: 065
     Dates: start: 20130414
  3. NEXIUM [Concomitant]
     Indication: BARRETT^S OESOPHAGUS
     Dates: end: 201302
  4. NEXIUM [Concomitant]
     Dates: start: 201302
  5. AZOR [Concomitant]
     Indication: HYPERTENSION
     Dosage: 10 MILLIGRAM/ 40 MILLIGRAM QD
     Dates: start: 2009
  6. CITRACAL [Concomitant]
     Indication: BLOOD CALCIUM DECREASED
     Dates: start: 201211
  7. VITAMIN D [Concomitant]
     Indication: OSTEOPOROSIS
  8. RITALIN [Concomitant]
     Indication: ATTENTION DEFICIT/HYPERACTIVITY DISORDER
     Dates: start: 2006
  9. ZOLADEX EXTENDED RELEASE [Concomitant]
     Indication: PROSTATE CANCER
     Dates: start: 201207
  10. ASPIRIN [Concomitant]
     Indication: PROPHYLAXIS
     Dates: start: 2003
  11. CENTRUM SILVER [Concomitant]
     Indication: VITAMIN SUPPLEMENTATION
  12. COSOPT [Concomitant]
     Indication: GLAUCOMA
     Dosage: ONE DROP BOTH EYES TWICE DAILY; OCULAR USE
  13. XALATAN [Concomitant]
     Indication: GLAUCOMA
     Dosage: ONE DROP BOTH EYES DAILY; OCULAR USE
  14. MAGNESIUM [Concomitant]
     Indication: PRODUCT USED FOR UNKNOWN INDICATION
     Route: 065
  15. MULTIPLE VITAMIN [Concomitant]
     Indication: PRODUCT USED FOR UNKNOWN INDICATION
     Route: 065
  16. BABY ASPIRIN [Concomitant]
     Indication: PRODUCT USED FOR UNKNOWN INDICATION

REACTIONS (2)
  - Product size issue [Recovered/Resolved]
  - Product taste abnormal [Recovered/Resolved]
